FAERS Safety Report 7501342-3 (Version None)
Quarter: 2011Q2

REPORT INFORMATION
  Report Type: 
  Country: None (occurrence: None)
  Receive Date: 20110524
  Receipt Date: 20110519
  Transmission Date: 20111010
  Serious: Yes (Other)
  Sender: FDA-Public Use
  Company Number: NL-ABBOTT-11P-114-0727142-00

PATIENT
  Age: 60 Year
  Sex: Male
  Weight: 60 kg

DRUGS (15)
  1. ROSUVASTATIN [Interacting]
     Indication: HYPERCHOLESTEROLAEMIA
  2. TRAMADOL HCL [Concomitant]
     Indication: PRODUCT USED FOR UNKNOWN INDICATION
  3. PRAVASTATIN [Concomitant]
     Indication: HYPERCHOLESTEROLAEMIA
  4. GEMFIBROZIL [Suspect]
     Indication: HYPERCHOLESTEROLAEMIA
  5. AMITRIPTYLENE [Concomitant]
     Indication: PRODUCT USED FOR UNKNOWN INDICATION
  6. GABAPENTIN [Concomitant]
     Indication: PRODUCT USED FOR UNKNOWN INDICATION
  7. PRAVASTATIN [Concomitant]
  8. TENOFOVIR DISOPROXIL FUMARATE [Interacting]
  9. ABACAVIR [Concomitant]
  10. LOPINAVIR/RITONAVIR [Interacting]
     Indication: ANTIRETROVIRAL THERAPY
     Dosage: 400/100 MG TWICE A DAY
  11. TENOFOVIR DISOPROXIL FUMARATE [Interacting]
     Indication: ANTIRETROVIRAL THERAPY
  12. TAMSULOSIN HCL [Concomitant]
     Indication: PRODUCT USED FOR UNKNOWN INDICATION
  13. ACETYLSALICYLIC ACID SRT [Concomitant]
     Indication: PRODUCT USED FOR UNKNOWN INDICATION
  14. CIPROFLOXACIN [Suspect]
     Indication: URINARY TRACT INFECTION
  15. ABACAVIR [Concomitant]
     Indication: ANTIRETROVIRAL THERAPY

REACTIONS (3)
  - RHABDOMYOLYSIS [None]
  - DRUG INTERACTION [None]
  - RENAL IMPAIRMENT [None]
